FAERS Safety Report 23433976 (Version 1)
Quarter: 2024Q1

REPORT INFORMATION
  Report Type: Spontaneous
  Country: US (occurrence: US)
  Receive Date: 20240123
  Receipt Date: 20240123
  Transmission Date: 20240410
  Serious: No
  Sender: FDA-Public Use
  Company Number: US-MYLANLABS-2024M1003626

PATIENT
  Sex: Female
  Weight: 87.09 kg

DRUGS (2)
  1. NEURONTIN [Suspect]
     Active Substance: GABAPENTIN
     Indication: Insomnia
     Dosage: UNK
     Route: 065
  2. TIKOSYN [Concomitant]
     Active Substance: DOFETILIDE
     Dosage: UNK
     Route: 065

REACTIONS (1)
  - Off label use [Unknown]
